FAERS Safety Report 9003563 (Version 3)
Quarter: 2013Q1

REPORT INFORMATION
  Report Type: Spontaneous
  Country: CA (occurrence: CA)
  Receive Date: 20130108
  Receipt Date: 20130128
  Transmission Date: 20140127
  Serious: Yes (Death, Other)
  Sender: FDA-Public Use
  Company Number: PHHY2012CA122897

PATIENT
  Age: 88 Year
  Sex: Male

DRUGS (4)
  1. ACLASTA [Suspect]
     Indication: OSTEOPOROSIS
     Dosage: UNK UKN, UNK
     Route: 042
     Dates: start: 20080220
  2. ACLASTA [Suspect]
     Dosage: UNK UKN, UNK
     Route: 042
     Dates: start: 20090507
  3. ACLASTA [Suspect]
     Dosage: UNK UKN, UNK
     Route: 042
     Dates: start: 20100714
  4. ACLASTA [Suspect]
     Dosage: UNK UKN, UNK
     Route: 042
     Dates: start: 20110811

REACTIONS (3)
  - Death [Fatal]
  - Chronic obstructive pulmonary disease [Unknown]
  - Malaise [Unknown]
